APPROVED DRUG PRODUCT: EVOCLIN
Active Ingredient: CLINDAMYCIN PHOSPHATE
Strength: 1% **Federal Register determination that product was not discontinued or withdrawn for safety or effectiveness reasons**
Dosage Form/Route: AEROSOL, FOAM;TOPICAL
Application: N050801 | Product #001
Applicant: NORVIUM BIOSCIENCE LLC
Approved: Oct 22, 2004 | RLD: Yes | RS: No | Type: DISCN